FAERS Safety Report 24022460 (Version 3)
Quarter: 2024Q2

REPORT INFORMATION
  Report Type: Report from Study
  Country: AR (occurrence: AR)
  Receive Date: 20240627
  Receipt Date: 20240628
  Transmission Date: 20240716
  Serious: No
  Sender: FDA-Public Use
  Company Number: AR-ROCHE-3361302

PATIENT
  Age: 52 Year
  Sex: Male

DRUGS (5)
  1. ALECTINIB [Suspect]
     Active Substance: ALECTINIB
     Indication: Lung cancer metastatic
     Route: 048
     Dates: start: 20211018
  2. ALECTINIB [Suspect]
     Active Substance: ALECTINIB
     Route: 048
     Dates: start: 20200702
  3. TRAMADOL [Concomitant]
     Active Substance: TRAMADOL\TRAMADOL HYDROCHLORIDE
     Indication: Back pain
     Dosage: FREQUENCY TEXT:PRN
     Route: 048
     Dates: start: 20200716
  4. LORLATINIB [Concomitant]
     Active Substance: LORLATINIB
  5. GLICLAZIDE [Concomitant]
     Active Substance: GLICLAZIDE
     Indication: Diabetes mellitus
     Route: 048

REACTIONS (1)
  - Macule [Recovered/Resolved]

NARRATIVE: CASE EVENT DATE: 20220101
